FAERS Safety Report 19766465 (Version 1)
Quarter: 2021Q3

REPORT INFORMATION
  Report Type: Spontaneous
  Country: CA (occurrence: CA)
  Receive Date: 20210830
  Receipt Date: 20210830
  Transmission Date: 20211014
  Serious: Yes (Other)
  Sender: FDA-Public Use
  Company Number: CA-LUPIN PHARMACEUTICALS INC.-2021-15828

PATIENT
  Age: 7 Decade
  Sex: Male

DRUGS (3)
  1. VORTIOXETINE. [Suspect]
     Active Substance: VORTIOXETINE
     Indication: MAJOR DEPRESSION
     Dosage: 20 MILLIGRAM, QD (TITRATED TO 20 MG/D)
     Route: 065
  2. ESCITALOPRAM [Suspect]
     Active Substance: ESCITALOPRAM OXALATE
     Indication: MAJOR DEPRESSION
     Dosage: 10 MILLIGRAM, QD
     Route: 065
  3. SERTRALINE [Suspect]
     Active Substance: SERTRALINE HYDROCHLORIDE
     Indication: MAJOR DEPRESSION
     Dosage: 200 MILLIGRAM, QD TITRATED UP TO 200 MG/D
     Route: 065

REACTIONS (3)
  - Condition aggravated [Recovered/Resolved]
  - Drug ineffective [Unknown]
  - Major depression [Recovered/Resolved]
